FAERS Safety Report 19666663 (Version 47)
Quarter: 2023Q4

REPORT INFORMATION
  Report Type: Report from Study
  Country: DE (occurrence: DE)
  Receive Date: 20210806
  Receipt Date: 20231222
  Transmission Date: 20240110
  Serious: Yes (Life-Threatening, Hospitalization, Other)
  Sender: FDA-Public Use
  Company Number: DE-002147023-PHHY2019DE168419

PATIENT
  Age: 79 Year
  Sex: Female
  Weight: 58 kg

DRUGS (35)
  1. LETROZOLE [Suspect]
     Active Substance: LETROZOLE
     Indication: Breast cancer metastatic
     Dosage: 2.5 MILLIGRAM, QD
     Route: 048
     Dates: start: 20190704, end: 20190819
  2. LETROZOLE [Suspect]
     Active Substance: LETROZOLE
     Indication: Hormone receptor positive HER2 negative breast cancer
  3. LETROZOLE [Suspect]
     Active Substance: LETROZOLE
     Indication: Breast cancer
  4. TORSEMIDE [Suspect]
     Active Substance: TORSEMIDE
     Indication: Atrial fibrillation
     Dosage: 10 MG, A HALF IN THE MORNING
     Route: 065
     Dates: start: 20200727, end: 20220901
  5. TORSEMIDE [Suspect]
     Active Substance: TORSEMIDE
     Indication: Cardiac failure
     Dosage: 10 MILLIGRAM, QD, 1-0.5-0-0   (1X DAILY (MOR)
     Route: 065
     Dates: start: 20230801, end: 20230828
  6. TORSEMIDE [Suspect]
     Active Substance: TORSEMIDE
     Indication: Oedema peripheral
     Dosage: 10 MILLIGRAM, QD (10 MG, QD (1X DAILY (MORNING)
     Route: 065
     Dates: start: 20230829
  7. TORSEMIDE [Suspect]
     Active Substance: TORSEMIDE
     Indication: Pleural effusion
  8. FULVESTRANT [Suspect]
     Active Substance: FULVESTRANT
     Indication: Product used for unknown indication
     Dosage: UNK
     Route: 065
     Dates: start: 20190819
  9. KISQALI [Suspect]
     Active Substance: RIBOCICLIB
     Indication: Breast cancer metastatic
     Dosage: 600 MILLIGRAM, QD (21 DAYS INTAKE, 7 DAYS PAUSE)
     Route: 048
     Dates: start: 20190704, end: 20190717
  10. KISQALI [Suspect]
     Active Substance: RIBOCICLIB
     Indication: Hormone receptor positive HER2 negative breast cancer
     Dosage: 400 MILLIGRAM, QD (21 DAYS INTAKE, 7 DAYS PAUSE)
     Route: 048
     Dates: start: 20190808, end: 20190808
  11. KISQALI [Suspect]
     Active Substance: RIBOCICLIB
     Indication: Breast cancer
     Dosage: UNK UNK, QD
     Route: 048
     Dates: start: 20190718, end: 20190807
  12. KISQALI [Suspect]
     Active Substance: RIBOCICLIB
     Dosage: UNK UNK, QD
     Route: 048
     Dates: start: 20190809, end: 20190819
  13. KISQALI [Suspect]
     Active Substance: RIBOCICLIB
     Dosage: 400MG,QD(SCHEME 21 DAYS INTAKE)
     Route: 048
     Dates: start: 20190808
  14. KISQALI [Suspect]
     Active Substance: RIBOCICLIB
     Dosage: UNK UNK, QD
     Route: 048
     Dates: start: 20190809, end: 20190809
  15. PALBOCICLIB [Suspect]
     Active Substance: PALBOCICLIB
     Indication: Breast cancer metastatic
     Dosage: 100MG,QD CYCLIC(21 DAYS INTAKE, 7 DAYS PAUSE)
     Route: 048
     Dates: start: 20200114, end: 20200601
  16. PALBOCICLIB [Suspect]
     Active Substance: PALBOCICLIB
     Dosage: 100MG, QD(21 DAYS INTAKE, 7 DAYS PAUSE)
     Route: 048
     Dates: end: 20200601
  17. PALBOCICLIB [Suspect]
     Active Substance: PALBOCICLIB
     Dosage: 100MG,QD CYCLIC(21DINTAKE, 7 DAYS PAUSE)
     Route: 048
     Dates: start: 20200603, end: 20200728
  18. PALBOCICLIB [Suspect]
     Active Substance: PALBOCICLIB
     Dosage: 100MG,QD CYCLIC (21D INTAKE, D7PAUSE)
     Route: 048
     Dates: start: 20200812, end: 20210907
  19. PALBOCICLIB [Suspect]
     Active Substance: PALBOCICLIB
     Dosage: 100MG,QD (SCHEME 21 DAYS INTAKE, 7 DAYS PAUSE)
     Route: 048
     Dates: start: 20200909, end: 20201103
  20. PALBOCICLIB [Suspect]
     Active Substance: PALBOCICLIB
     Dosage: 100MG, QD(21D INTAKE, D7PAUSE)
     Route: 048
     Dates: end: 20211103
  21. PALBOCICLIB [Suspect]
     Active Substance: PALBOCICLIB
     Dosage: 100 MG, QD CYCLIC (21D INTAKE, D7PAUSE)
     Route: 048
     Dates: start: 20210909, end: 20211103
  22. PALBOCICLIB [Suspect]
     Active Substance: PALBOCICLIB
     Dosage: 100MG, QD
     Route: 048
     Dates: start: 20211111, end: 20220823
  23. PALBOCICLIB [Suspect]
     Active Substance: PALBOCICLIB
     Dosage: 75MG, QD (21D INTAKE, D7PAUSE)
     Route: 048
     Dates: start: 20220901, end: 20221102
  24. PALBOCICLIB [Suspect]
     Active Substance: PALBOCICLIB
     Dosage: 75MG, QD (21D INTAKE, D7PAUSE)
     Route: 048
     Dates: start: 20221116, end: 20221129
  25. PALBOCICLIB [Suspect]
     Active Substance: PALBOCICLIB
     Dosage: 75MG, QD (21D INTAKE, D7PAUSE)
     Route: 048
     Dates: start: 20221207, end: 20230710
  26. PALBOCICLIB [Suspect]
     Active Substance: PALBOCICLIB
     Dosage: 100MG, QD (21D INTAKE, D7PAUSE)
     Route: 048
  27. PALBOCICLIB [Suspect]
     Active Substance: PALBOCICLIB
     Dosage: 100MG (ADMIN SCHEME 21 DAY INTAKE, 7 DAYS PAUSE)
     Route: 048
     Dates: start: 20190820, end: 20200106
  28. Novalgin [Concomitant]
     Indication: Product used for unknown indication
     Dosage: 500 MILLIGRAM, PRN
     Route: 065
     Dates: start: 201904
  29. BISOPROLOL FUMARATE\HYDROCHLOROTHIAZIDE [Concomitant]
     Active Substance: BISOPROLOL FUMARATE\HYDROCHLOROTHIAZIDE
     Indication: Product used for unknown indication
     Dosage: 0.5DF,QD(ONCE PER DAY IN MOR)10/25 MG
     Route: 065
     Dates: start: 2000
  30. CALCIUM [Concomitant]
     Active Substance: CALCIUM
     Indication: Product used for unknown indication
     Dosage: 400MG, QD (ONCE PER DAY AT NOON)
     Route: 065
     Dates: start: 2016
  31. LEVOTHYROXINE [Concomitant]
     Active Substance: LEVOTHYROXINE
     Indication: Product used for unknown indication
     Dosage: 88 MICROGRAM, QD (MORNING)
     Route: 065
     Dates: start: 2011
  32. AMLODIPINE BESYLATE\OLMESARTAN MEDOXOMIL [Concomitant]
     Active Substance: AMLODIPINE BESYLATE\OLMESARTAN MEDOXOMIL
     Indication: Product used for unknown indication
     Dosage: 40 MG, QD (MORNING)
     Route: 065
     Dates: start: 2019
  33. CHOLECALCIFEROL [Concomitant]
     Active Substance: CHOLECALCIFEROL
     Indication: Product used for unknown indication
     Dosage: 20000 INTERNATIONAL UNIT, MONTHLY
     Route: 065
     Dates: start: 2016
  34. ASPIRIN [Concomitant]
     Active Substance: ASPIRIN
     Indication: Product used for unknown indication
     Dosage: 100MG, QD (ONCE PER DAY AT NOON)
     Route: 065
     Dates: start: 2000
  35. LETROZOLE [Concomitant]
     Active Substance: LETROZOLE
     Indication: Product used for unknown indication
     Dosage: UNK
     Route: 065

REACTIONS (36)
  - General physical health deterioration [Recovered/Resolved]
  - Leukopenia [Recovered/Resolved]
  - Chronic kidney disease [Not Recovered/Not Resolved]
  - Asthenia [Unknown]
  - Blood creatinine increased [Not Recovered/Not Resolved]
  - Hyponatraemia [Recovering/Resolving]
  - Renal impairment [Not Recovered/Not Resolved]
  - Thrombocytopenia [Recovered/Resolved]
  - Nephrolithiasis [Recovered/Resolved]
  - Electrocardiogram QT prolonged [Recovered/Resolved]
  - Glomerular filtration rate decreased [Recovering/Resolving]
  - Concomitant disease aggravated [Recovering/Resolving]
  - Atrial fibrillation [Recovering/Resolving]
  - Renal failure [Recovering/Resolving]
  - Hypertension [Recovered/Resolved]
  - Vomiting [Recovered/Resolved]
  - Nausea [Recovered/Resolved]
  - Neutropenia [Recovered/Resolved]
  - Cardiac failure [Not Recovered/Not Resolved]
  - Urinary retention [Not Recovered/Not Resolved]
  - Blood glucose increased [Recovering/Resolving]
  - Bronchitis [Recovered/Resolved]
  - Anaemia [Not Recovered/Not Resolved]
  - Eastern Cooperative Oncology Group performance status worsened [Recovered/Resolved]
  - Cystitis [Recovered/Resolved]
  - Oedema peripheral [Recovering/Resolving]
  - Blood thyroid stimulating hormone increased [Recovered/Resolved]
  - Pleural effusion [Not Recovered/Not Resolved]
  - Dyspnoea [Not Recovered/Not Resolved]
  - Blood alkaline phosphatase increased [Recovered/Resolved]
  - Dry skin [Recovering/Resolving]
  - Urinary tract infection [Not Recovered/Not Resolved]
  - Product use in unapproved indication [Unknown]
  - Off label use [Unknown]
  - C-reactive protein increased [Not Recovered/Not Resolved]
  - Infection [Recovered/Resolved]

NARRATIVE: CASE EVENT DATE: 20190716
